FAERS Safety Report 4724520-5 (Version None)
Quarter: 2005Q3

REPORT INFORMATION
  Report Type: 
  Country: None (occurrence: None)
  Receive Date: 20050726
  Receipt Date: 20050720
  Transmission Date: 20060218
  Serious: Yes (Hospitalization)
  Sender: FDA-Public Use
  Company Number: US-BOEHRINGER INGELHEIM PHARMACEUTICALS, INC.-2005-BP-12443BP

PATIENT
  Sex: Male
  Weight: 72.57 kg

DRUGS (6)
  1. TIPRANAVIR / RITONAVIR CAPSULES [Suspect]
     Indication: HIV INFECTION
     Dosage: TPV/R 1000/400MG
     Route: 048
  2. TIPRANAVIR / RITONAVIR CAPSULES [Suspect]
     Dosage: TPV/R 1000/400MG
     Route: 048
     Dates: start: 20050701
  3. FUZEON [Suspect]
     Indication: HIV INFECTION
     Route: 058
  4. VIREAD [Concomitant]
     Indication: HIV INFECTION
     Route: 048
  5. EPIVIR [Concomitant]
     Indication: HIV INFECTION
     Route: 048
  6. ZIAGEN [Concomitant]
     Indication: HIV INFECTION
     Route: 048

REACTIONS (1)
  - PNEUMONIA [None]
